FAERS Safety Report 8601305-0 (Version None)
Quarter: 2012Q3

REPORT INFORMATION
  Report Type: 
  Country: None (occurrence: None)
  Receive Date: 20120817
  Receipt Date: 20120807
  Transmission Date: 20120928
  Serious: Yes (Other)
  Sender: FDA-Public Use
  Company Number: DE-JNJFOC-20120715369

PATIENT
  Age: 53 Year
  Sex: Female

DRUGS (10)
  1. METHOTREXATE [Concomitant]
     Indication: MUSCULOSKELETAL PAIN
     Dates: start: 20100601, end: 20100101
  2. REMICADE [Suspect]
     Indication: RHEUMATOID ARTHRITIS
     Dosage: TREATED WITH REMICADE 4X200 MG
     Route: 042
     Dates: start: 20110301, end: 20110601
  3. ADALIMUMAB [Suspect]
     Indication: RHEUMATOID ARTHRITIS
     Dates: start: 20110801, end: 20110901
  4. ERGOCALCIFEROL [Concomitant]
  5. AZULFIDINE [Concomitant]
     Indication: MUSCULOSKELETAL PAIN
     Dates: start: 20100601, end: 20100901
  6. LEFLUNOMIDE [Concomitant]
     Indication: MUSCULOSKELETAL PAIN
     Dates: start: 20100901, end: 20110301
  7. METOCLOPRAMIDE [Concomitant]
  8. ORENCIA [Concomitant]
     Indication: MUSCULOSKELETAL PAIN
     Dates: start: 20111101
  9. CALCIUM [Concomitant]
  10. METHOTREXATE [Concomitant]
     Dates: start: 20100101

REACTIONS (1)
  - SKIN FISSURES [None]
